FAERS Safety Report 7982181-6 (Version None)
Quarter: 2011Q4

REPORT INFORMATION
  Report Type: 
  Country: None (occurrence: None)
  Receive Date: 20111214
  Receipt Date: 20111214
  Transmission Date: 20120403
  Serious: Yes (Hospitalization)
  Sender: FDA-Public Use
  Company Number: None

PATIENT
  Age: 64 Year
  Sex: Male
  Weight: 70.2 kg

DRUGS (1)
  1. PROPARACAINE HCL [Suspect]
     Indication: INTRAOCULAR PRESSURE TEST
     Dosage: 1 DROPS ONCE EYE
     Dates: start: 20110901, end: 20110901

REACTIONS (5)
  - HYPERHIDROSIS [None]
  - PRESYNCOPE [None]
  - DIZZINESS [None]
  - ASTHENIA [None]
  - BRADYCARDIA [None]
